FAERS Safety Report 9248655 (Version 1)
Quarter: 2013Q1

REPORT INFORMATION
  Report Type: Spontaneous
  Country: US (occurrence: None)
  Receive Date: 20121120
  Receipt Date: 20121120
  Transmission Date: 20140127
  Serious: No
  Sender: FDA-Public Use
  Company Number: 1000038267

PATIENT
  Age: 34 Year
  Sex: Female

DRUGS (9)
  1. VIIBRYD [Suspect]
     Indication: DEPRESSION
     Dosage: 1 IN 1 D
     Route: 048
     Dates: start: 201202
  2. ALBUTEROL SULFATE [Suspect]
     Dosage: 2 PUFFS Q 4-6 HOURS (2 PUFFS Q 4-6 HOURS)
  3. LAMICTAL (LAMOTRIGINE) [Concomitant]
  4. SEASONIQUE (EUGYNON) [Concomitant]
  5. VALTREX (VALACICLOVIR HYDROCHLORIDE) (VALACICLOVIR HYDROCHLORIDE) [Concomitant]
  6. MVI (VITAMINS NOS) [Concomitant]
  7. HUMIRA (ADALIMUMAB) [Concomitant]
  8. AMBIEN (ZOLPIDEM TARTRATE) [Concomitant]
  9. XANAX (ALPRAZOLAM) [Concomitant]

REACTIONS (4)
  - Panic attack [None]
  - Paraesthesia [None]
  - Palpitations [None]
  - Muscle spasms [None]
